FAERS Safety Report 6550071-1 (Version None)
Quarter: 2010Q1

REPORT INFORMATION
  Report Type: 
  Country: None (occurrence: None)
  Receive Date: 20100125
  Receipt Date: 20100120
  Transmission Date: 20100710
  Serious: Yes (Death, Hospitalization)
  Sender: FDA-Public Use
  Company Number: US-NOVOPROD-303407

PATIENT
  Sex: Male
  Weight: 98 kg

DRUGS (12)
  1. NOVOLOG MIX 70/30 [Suspect]
     Dosage: 18 IU, BID
     Route: 058
  2. LISINOPRIL [Concomitant]
     Indication: HYPERTENSION
  3. METOPROLOL TARTRATE [Concomitant]
     Indication: HYPERTENSION
  4. BUMETANIDE [Concomitant]
     Indication: OEDEMA
  5. ZOLPIDEM TARTRATE [Concomitant]
     Indication: INSOMNIA
  6. FERROUS GLUCONATE [Concomitant]
     Indication: ANAEMIA
  7. GABAPENTIN [Concomitant]
     Indication: PAIN MANAGEMENT
     Dosage: AT BEDTIME
  8. LIDOCAINE [Concomitant]
     Indication: PAIN IN EXTREMITY
  9. METHYL SALICYLATE [Concomitant]
     Indication: DRUG USE FOR UNKNOWN INDICATION
  10. PRAMIPEXOLE DIHYDROCHLORIDE [Concomitant]
     Indication: RESTLESS LEGS SYNDROME
  11. ASPIRIN [Concomitant]
     Indication: DRUG USE FOR UNKNOWN INDICATION
  12. FLUNISOLIDE [Concomitant]
     Indication: NASAL CONGESTION
     Route: 045

REACTIONS (1)
  - CEREBROVASCULAR ACCIDENT [None]
